FAERS Safety Report 7147831-5 (Version None)
Quarter: 2010Q4

REPORT INFORMATION
  Report Type: 
  Country: None (occurrence: None)
  Receive Date: 20101206
  Receipt Date: 20101206
  Transmission Date: 20110411
  Serious: Yes (Disabling, Other)
  Sender: FDA-Public Use
  Company Number: None

PATIENT
  Age: 48 Year
  Sex: Female
  Weight: 81.6475 kg

DRUGS (1)
  1. CIPROFLOXACIN HCL 500 MG 1 DAILY DR REDDY'S LAB [Suspect]
     Indication: PROPHYLAXIS URINARY TRACT INFECTION
     Dosage: 500 MG 1 DAILY CVS #9179 RX 0136513 DR. REDDY'S LAB
     Dates: start: 20100927, end: 20100930

REACTIONS (10)
  - ASTHENIA [None]
  - CARDIAC DISORDER [None]
  - INSOMNIA [None]
  - JOINT SWELLING [None]
  - MUSCLE ATROPHY [None]
  - MUSCLE DISORDER [None]
  - MYALGIA [None]
  - NERVE INJURY [None]
  - PAIN [None]
  - SYNOVITIS [None]
